FAERS Safety Report 9008990 (Version 1)
Quarter: 2013Q1

REPORT INFORMATION
  Report Type: Spontaneous
  Country: US (occurrence: US)
  Receive Date: 20130111
  Receipt Date: 20130111
  Transmission Date: 20140127
  Serious: No
  Sender: FDA-Public Use
  Company Number: US-PFIZER INC-2012271901

PATIENT
  Age: 33 Year
  Sex: Female

DRUGS (10)
  1. PRISTIQ [Suspect]
     Dosage: 50 MG DAILY
     Route: 048
     Dates: start: 20121030
  2. DEPAKOTE - SLOW RELEASE [Concomitant]
     Indication: BIPOLAR DISORDER
     Dosage: UNK, BEDTIME
     Route: 042
  3. VISTARIL [Concomitant]
     Indication: ANXIETY
     Dosage: 50 MG, 3X/DAY PRN
  4. LISINOPRIL [Concomitant]
     Indication: BLOOD PRESSURE INCREASED
     Dosage: 10 MG, DAILY
  5. ADVAIR [Concomitant]
     Dosage: 250 UG, 2X/DAY
  6. ALBUTEROL [Concomitant]
     Dosage: PRN UNK
     Route: 055
  7. OXYBUTYNIN [Concomitant]
     Dosage: 5 MG, 2X/DAY
  8. ATORVASTATIN [Concomitant]
     Dosage: 10 MG, DAILY
  9. METFORMIN [Concomitant]
     Dosage: 1000 MG, 2X/DAY
  10. SINGULAIR [Concomitant]
     Dosage: 10 MG, DAILY

REACTIONS (3)
  - Feeling abnormal [Unknown]
  - Screaming [Unknown]
  - Crying [Unknown]
